FAERS Safety Report 6358566-0 (Version None)
Quarter: 2009Q3

REPORT INFORMATION
  Report Type: 
  Country: None (occurrence: None)
  Receive Date: 20090914
  Receipt Date: 20090908
  Transmission Date: 20100115
  Serious: Yes (Hospitalization, Other)
  Sender: FDA-Public Use
  Company Number: CERZ-1000884

PATIENT
  Age: 55 Year
  Sex: Male
  Weight: 75 kg

DRUGS (14)
  1. CEREZYME [Suspect]
     Indication: GAUCHER'S DISEASE
     Dosage: 2000 U, QW; INTRAVENOUS
     Route: 042
  2. MS CONTIN [Concomitant]
  3. ZANTAC 150 [Concomitant]
  4. MS CONTIN [Concomitant]
  5. SPIRONOLACTONE W (HYDROCHLOROTHIAZIDE, SPIRONOLACTONE) [Concomitant]
  6. DIAZEPAM [Concomitant]
  7. AMLODIPINE [Concomitant]
  8. EPOGEN [Concomitant]
  9. MORPHINE SULFATE [Concomitant]
  10. MIRALAX [Concomitant]
  11. SEVELAMER (SEVELAMER) [Concomitant]
  12. RANITIDINE HCL [Concomitant]
  13. COLACE (DOCUSATE SODIUM) [Concomitant]
  14. BENADRYL [Concomitant]

REACTIONS (17)
  - ANAEMIA [None]
  - BONE PAIN [None]
  - CATHETER RELATED INFECTION [None]
  - CHILLS [None]
  - CULTURE URINE POSITIVE [None]
  - HAEMODIALYSIS [None]
  - HEPATITIS C [None]
  - HYPERPARATHYROIDISM [None]
  - INFLUENZA LIKE ILLNESS [None]
  - MALAISE [None]
  - OEDEMA [None]
  - OROPHARYNGEAL PAIN [None]
  - PYREXIA [None]
  - RENAL FAILURE ACUTE [None]
  - STAPHYLOCOCCAL BACTERAEMIA [None]
  - STREPTOCOCCAL INFECTION [None]
  - URINARY TRACT INFECTION [None]
